FAERS Safety Report 6020104-X (Version None)
Quarter: 2008Q4

REPORT INFORMATION
  Report Type: 
  Country: None (occurrence: None)
  Receive Date: 20081226
  Receipt Date: 20081216
  Transmission Date: 20090506
  Serious: Yes (Hospitalization)
  Sender: FDA-Public Use
  Company Number: JP-ABBOTT-08P-087-0486779-00

PATIENT
  Sex: Male

DRUGS (6)
  1. LEUPROLIDE ACETATE [Suspect]
     Indication: PROSTATE CANCER
     Route: 058
     Dates: start: 20080925, end: 20081023
  2. CASODEX [Suspect]
     Indication: PROSTATE CANCER
     Route: 048
     Dates: start: 20080901, end: 20081104
  3. CONIEL [Concomitant]
     Indication: HYPERTENSION
     Route: 048
  4. CARDENALIN [Concomitant]
     Indication: HYPERTENSION
     Route: 048
  5. TANATRIL [Concomitant]
     Indication: HYPERTENSION
  6. CYANOCOBALAMIN [Concomitant]
     Indication: NEUROPATHY PERIPHERAL
     Dosage: 1500MCG DAILY
     Route: 048

REACTIONS (1)
  - INTERSTITIAL LUNG DISEASE [None]
